FAERS Safety Report 20674284 (Version 1)
Quarter: 2022Q2

REPORT INFORMATION
  Report Type: Spontaneous
  Country: US (occurrence: None)
  Receive Date: 20220404
  Receipt Date: 20220404
  Transmission Date: 20220721
  Serious: No
  Sender: FDA-Public Use
  Company Number: None

PATIENT
  Age: 65 Year
  Sex: Male

DRUGS (2)
  1. DUPIXENT [Suspect]
     Active Substance: DUPILUMAB
     Indication: Asthma
  2. Dupixent 300mg/2ml PFS [Concomitant]
     Dates: start: 20191209

REACTIONS (2)
  - Therapy interrupted [None]
  - Device physical property issue [None]

NARRATIVE: CASE EVENT DATE: 20220403
